FAERS Safety Report 10948973 (Version 2)
Quarter: 2019Q2

REPORT INFORMATION
  Report Type: Spontaneous
  Country: US (occurrence: US)
  Receive Date: 20150324
  Receipt Date: 20190625
  Transmission Date: 20190711
  Serious: Yes (Life-Threatening, Hospitalization, Other)
  Sender: FDA-Public Use
  Company Number: US-RECKITT BENCKISER PHARMACEUTICAL, INC-RB-077291-2015

PATIENT
  Sex: Male

DRUGS (2)
  1. NICOTINE. [Suspect]
     Active Substance: NICOTINE
     Indication: PRODUCT USED FOR UNKNOWN INDICATION
     Dosage: UNKNOWN
     Route: 064
  2. BUPRENORPHINE. [Suspect]
     Active Substance: BUPRENORPHINE
     Indication: DRUG DEPENDENCE
     Dosage: UNKNOWN
     Route: 064

REACTIONS (5)
  - Portal vein thrombosis [Recovered/Resolved]
  - Neonatal respiratory distress syndrome [Unknown]
  - Neonatal hepatomegaly [Unknown]
  - Pneumothorax [Unknown]
  - Foetal exposure during pregnancy [Recovered/Resolved]
